FAERS Safety Report 12192634 (Version 1)
Quarter: 2016Q1

REPORT INFORMATION
  Report Type: Spontaneous
  Country: US (occurrence: US)
  Receive Date: 20160318
  Receipt Date: 20160318
  Transmission Date: 20160526
  Serious: No
  Sender: FDA-Public Use
  Company Number: US-JUBILANT CADISTA PHARMACEUTICALS-2015JUB00260

PATIENT
  Sex: Female

DRUGS (3)
  1. UNSPECIFIED PSYCHOTROPIC MEDICATION(S) [Concomitant]
  2. LAMOTRIGINE. [Suspect]
     Active Substance: LAMOTRIGINE
     Indication: BIPOLAR DISORDER
     Dosage: 300 MG, 1X/DAY
     Route: 048
  3. ^AMICOR^ [Concomitant]
     Dosage: 10 DOSAGE UNITS, 1X/DAY

REACTIONS (2)
  - Choking [Unknown]
  - Weight decreased [Unknown]
